FAERS Safety Report 5604577-X (Version None)
Quarter: 2008Q1

REPORT INFORMATION
  Report Type: 
  Country: None (occurrence: None)
  Receive Date: 20080128
  Receipt Date: 20080124
  Transmission Date: 20080703
  Serious: Yes (Life-Threatening, Hospitalization)
  Sender: FDA-Public Use
  Company Number: GR-ASTRAZENECA-2008SE00426

PATIENT
  Age: 35 Year
  Sex: Female

DRUGS (3)
  1. SEROQUEL [Suspect]
     Indication: SCHIZOPHRENIA
     Dosage: 1000 OR 1200MG OD (5 OR 6 TABLETS)
     Route: 048
     Dates: end: 20080119
  2. FLUPIDOL [Concomitant]
     Dosage: 20 MG WEEKLY
     Route: 048
     Dates: end: 20080119
  3. AKINETON [Concomitant]
     Route: 048
     Dates: end: 20080119

REACTIONS (4)
  - BONE MARROW FAILURE [None]
  - HAEMORRHAGE [None]
  - LEUKOPENIA [None]
  - THROMBOCYTOPENIA [None]
